FAERS Safety Report 5298834-7 (Version None)
Quarter: 2007Q2

REPORT INFORMATION
  Report Type: 
  Country: None (occurrence: None)
  Receive Date: 20070417
  Receipt Date: 20050915
  Transmission Date: 20071010
  Serious: No
  Sender: FDA-Public Use
  Company Number: US-AMGEN-US150479

PATIENT
  Age: 25 Year
  Sex: Male

DRUGS (3)
  1. SENSIPAR [Suspect]
     Indication: HYPERPARATHYROIDISM SECONDARY
     Dates: start: 20040801
  2. PHOSLO [Concomitant]
  3. NEPHRO-CAPS [Concomitant]

REACTIONS (1)
  - CONVULSION [None]
